FAERS Safety Report 21895130 (Version 2)
Quarter: 2023Q1

REPORT INFORMATION
  Report Type: Report from Study
  Country: FR (occurrence: FR)
  Receive Date: 20230122
  Receipt Date: 20230201
  Transmission Date: 20230418
  Serious: Yes (Hospitalization)
  Sender: FDA-Public Use
  Company Number: FR-SUN PHARMACEUTICAL INDUSTRIES LTD-2023R1-373822

PATIENT
  Age: 28 Year
  Sex: Female

DRUGS (1)
  1. LITHIUM [Suspect]
     Active Substance: LITHIUM
     Indication: Bipolar disorder
     Dosage: UNK
     Route: 065

REACTIONS (2)
  - Therapy non-responder [Unknown]
  - Condition aggravated [Unknown]
